FAERS Safety Report 7746412-X (Version None)
Quarter: 2011Q3

REPORT INFORMATION
  Report Type: 
  Country: None (occurrence: None)
  Receive Date: 20110913
  Receipt Date: 20110913
  Transmission Date: 20111222
  Serious: Yes (Other)
  Sender: FDA-Public Use
  Company Number: None

PATIENT
  Age: 56 Year
  Sex: Female
  Weight: 64.41 kg

DRUGS (1)
  1. CLINDAMYCIN HCL [Suspect]
     Indication: DENTAL IMPLANTATION
     Dosage: 1 CAPSULE
     Route: 048
     Dates: start: 20110906, end: 20110908

REACTIONS (3)
  - HYPERSENSITIVITY [None]
  - PROCTALGIA [None]
  - PAIN [None]
